FAERS Safety Report 20944874 (Version 1)
Quarter: 2022Q2

REPORT INFORMATION
  Report Type: Spontaneous
  Country: RU (occurrence: RU)
  Receive Date: 20220610
  Receipt Date: 20220610
  Transmission Date: 20220721
  Serious: Yes (Other)
  Sender: FDA-Public Use
  Company Number: RU-Merck Healthcare KGaA-9326750

PATIENT
  Sex: Male

DRUGS (5)
  1. ERBITUX [Suspect]
     Active Substance: CETUXIMAB
     Indication: Squamous cell carcinoma of head and neck
     Dosage: UNK UNK, OTHER (3 TREATMENT COURSES)
     Route: 065
     Dates: start: 20210128
  2. CARBOPLATIN [Concomitant]
     Active Substance: CARBOPLATIN
     Indication: Squamous cell carcinoma of head and neck
     Dosage: 3 COURSES
     Dates: start: 202001, end: 202003
  3. CARBOPLATIN [Concomitant]
     Active Substance: CARBOPLATIN
     Dosage: UNK
     Dates: start: 20210128
  4. PACLITAXEL [Concomitant]
     Active Substance: PACLITAXEL
     Indication: Squamous cell carcinoma of head and neck
     Dosage: 3 COURSES
     Dates: start: 202001, end: 202003
  5. PACLITAXEL [Concomitant]
     Active Substance: PACLITAXEL
     Dosage: UNK
     Dates: start: 20210128

REACTIONS (2)
  - Platelet count decreased [Unknown]
  - Febrile neutropenia [Unknown]
